FAERS Safety Report 4554843-4 (Version None)
Quarter: 2005Q1

REPORT INFORMATION
  Report Type: 
  Country: None (occurrence: None)
  Receive Date: 20050114
  Receipt Date: 20041116
  Transmission Date: 20050727
  Serious: Yes (Other)
  Sender: FDA-Public Use
  Company Number: PHBS2004JP15113

PATIENT
  Age: 74 Year
  Sex: Female

DRUGS (4)
  1. RIMACTANE [Suspect]
     Indication: PULMONARY TUBERCULOSIS
  2. ISONIAZID [Suspect]
     Indication: PULMONARY TUBERCULOSIS
  3. ESANBUTOL (ETHAMBUTOL) [Suspect]
     Indication: PULMONARY TUBERCULOSIS
  4. PYRAZINAMIDE [Suspect]
     Indication: PULMONARY TUBERCULOSIS

REACTIONS (1)
  - STEVENS-JOHNSON SYNDROME [None]
